FAERS Safety Report 13664534 (Version 1)
Quarter: 2017Q2

REPORT INFORMATION
  Report Type: Spontaneous
  Country: NL (occurrence: NL)
  Receive Date: 20170619
  Receipt Date: 20170619
  Transmission Date: 20170830
  Serious: Yes (Death)
  Sender: FDA-Public Use
  Company Number: NL-TEVA-779087ACC

PATIENT
  Age: 45 Year
  Sex: Male
  Weight: 90 kg

DRUGS (9)
  1. BUMETANIDE TABLET 2MG [Concomitant]
     Dosage: 2 MILLIGRAM DAILY;
     Route: 048
  2. CISORDINOL DEPOT INJVLST 500MG/ML AMPUL 1ML (IM) [Concomitant]
     Active Substance: ZUCLOPENTHIXOL
     Route: 030
  3. PREDNISON TABLET 5MG [Concomitant]
     Dosage: 10 MILLIGRAM DAILY;
     Route: 048
     Dates: end: 20170512
  4. BIPERIDEEN TABLET 2MG [Concomitant]
     Dosage: 4 MILLIGRAM DAILY;
     Route: 048
  5. CANDESARTAN TABLET  8MG [Concomitant]
     Dosage: 8 MILLIGRAM DAILY;
     Route: 048
  6. LORAZEPAM TABLET 1MG [Concomitant]
     Route: 048
  7. RABEPRAZOL TABLET MSR 20MG [Concomitant]
     Dosage: 20 MILLIGRAM DAILY;
     Route: 048
  8. TACNI CAPSULE 1MG [Suspect]
     Active Substance: TACROLIMUS
     Indication: NEPHROTIC SYNDROME
     Dosage: 2 DOSAGE FORMS DAILY;
     Route: 048
     Dates: start: 20170426
  9. COLECALCIFEROL CAPSULE    800IE [Concomitant]
     Dosage: 800 IU (INTERNATIONAL UNIT) DAILY;
     Route: 048

REACTIONS (1)
  - Completed suicide [Fatal]

NARRATIVE: CASE EVENT DATE: 20170518
